FAERS Safety Report 25980014 (Version 1)
Quarter: 2025Q4

REPORT INFORMATION
  Report Type: Spontaneous
  Country: US (occurrence: US)
  Receive Date: 20251030
  Receipt Date: 20251030
  Transmission Date: 20260117
  Serious: No
  Sender: VERTEX
  Company Number: US-VERTEX PHARMACEUTICALS-2025-017863

PATIENT
  Age: 78 Year
  Sex: Female

DRUGS (3)
  1. JOURNAVX [Suspect]
     Active Substance: SUZETRIGINE
     Indication: Pain
     Dosage: 100 MG (02-50MG TABLETS), SINGLE
     Route: 048
     Dates: start: 20251016, end: 20251016
  2. JOURNAVX [Suspect]
     Active Substance: SUZETRIGINE
     Indication: Neuropathy peripheral
     Dosage: 50 MG, QD
     Route: 048
     Dates: start: 20251017, end: 20251019
  3. GABAPENTIN [Concomitant]
     Active Substance: GABAPENTIN
     Indication: Neuropathy peripheral

REACTIONS (2)
  - Somnolence [Unknown]
  - Off label use [Unknown]

NARRATIVE: CASE EVENT DATE: 20251016
